FAERS Safety Report 25625847 (Version 1)
Quarter: 2025Q3

REPORT INFORMATION
  Report Type: Report from Study
  Country: US (occurrence: US)
  Receive Date: 20250731
  Receipt Date: 20250731
  Transmission Date: 20251020
  Serious: No
  Sender: ACADIA PHARMACEUTICALS
  Company Number: US-ACADIA PHARMACEUTICALS INC.-ACA-2025-PIM-008761

PATIENT
  Age: 79 Year
  Sex: Female

DRUGS (19)
  1. NUPLAZID [Suspect]
     Active Substance: PIMAVANSERIN TARTRATE
     Indication: Parkinson^s disease
     Dosage: 34 MILLIGRAM, QD
     Route: 048
     Dates: start: 20241221
  2. CLOPIDOGREL [Concomitant]
     Active Substance: CLOPIDOGREL BISULFATE
  3. VITAMIN D NOS [Concomitant]
     Active Substance: CHOLECALCIFEROL\ERGOCALCIFEROL
  4. METOPROLOL [Concomitant]
     Active Substance: METOPROLOL
  5. FUROSEMIDE [Concomitant]
     Active Substance: FUROSEMIDE
  6. MELOXICAM [Concomitant]
     Active Substance: MELOXICAM
  7. PRAMIPEXOLE [Concomitant]
     Active Substance: PRAMIPEXOLE
  8. ASPIRIN [Concomitant]
     Active Substance: ASPIRIN
  9. QUETIAPINE [Concomitant]
     Active Substance: QUETIAPINE
  10. ISOSORBIDE MONONITRATE [Concomitant]
     Active Substance: ISOSORBIDE MONONITRATE
  11. OXYBUTYNIN [Concomitant]
     Active Substance: OXYBUTYNIN
  12. ATORVASTATIN [Concomitant]
     Active Substance: ATORVASTATIN
  13. LORATADINE [Concomitant]
     Active Substance: LORATADINE
  14. ACETAMINOPHEN [Concomitant]
     Active Substance: ACETAMINOPHEN
  15. AMLODIPINE [Concomitant]
     Active Substance: AMLODIPINE BESYLATE
  16. GABAPENTIN [Concomitant]
     Active Substance: GABAPENTIN
  17. FAMOTIDINE [Concomitant]
     Active Substance: FAMOTIDINE
  18. OMEPRAZOLE [Concomitant]
     Active Substance: OMEPRAZOLE
  19. DONEPEZIL [Concomitant]
     Active Substance: DONEPEZIL

REACTIONS (1)
  - Product dose omission issue [Not Recovered/Not Resolved]

NARRATIVE: CASE EVENT DATE: 20250727
